FAERS Safety Report 5148882-2 (Version None)
Quarter: 2006Q4

REPORT INFORMATION
  Report Type: 
  Country: None (occurrence: None)
  Receive Date: 20061108
  Receipt Date: 20061026
  Transmission Date: 20070319
  Serious: Yes (Death, Other)
  Sender: FDA-Public Use
  Company Number: 2006134471

PATIENT
  Sex: Male

DRUGS (3)
  1. CELEBREX [Suspect]
  2. BEXTRA [Suspect]
  3. VIOXX [Suspect]
     Dates: start: 20000830, end: 20010306

REACTIONS (1)
  - MYOCARDIAL INFARCTION [None]
